FAERS Safety Report 6258349-6 (Version None)
Quarter: 2009Q3

REPORT INFORMATION
  Report Type: 
  Country: None (occurrence: None)
  Receive Date: 20090702
  Receipt Date: 20090624
  Transmission Date: 20100115
  Serious: Yes (Hospitalization)
  Sender: FDA-Public Use
  Company Number: IMP_04453_2009

PATIENT
  Age: 40 Year
  Sex: Female

DRUGS (2)
  1. MINOCYCLINE HCL [Suspect]
     Indication: ACNE
     Dosage: 100 MG QD
  2. PROGESTOGENS AND ESTROGENS IN COMBINATION [Concomitant]

REACTIONS (10)
  - ARTHRALGIA [None]
  - ARTHRITIS [None]
  - JOINT STIFFNESS [None]
  - JOINT SWELLING [None]
  - MYALGIA [None]
  - NEUROPATHY PERIPHERAL [None]
  - RASH [None]
  - SKIN LESION [None]
  - SUBCUTANEOUS NODULE [None]
  - VASCULITIS NECROTISING [None]
